FAERS Safety Report 25287476 (Version 1)
Quarter: 2025Q2

REPORT INFORMATION
  Report Type: Other
  Country: US (occurrence: US)
  Receive Date: 20250509
  Receipt Date: 20250509
  Transmission Date: 20250717
  Serious: Yes (Hospitalization)
  Sender: ANI
  Company Number: US-ANIPHARMA-022684

PATIENT
  Age: 64 Year
  Sex: Male

DRUGS (4)
  1. IBUPROFEN [Suspect]
     Active Substance: IBUPROFEN
     Indication: Arthralgia
  2. ASPIRIN [Concomitant]
     Active Substance: ASPIRIN
     Indication: Arthralgia
  3. ASPIRIN [Concomitant]
     Active Substance: ASPIRIN
     Indication: Back pain
  4. IBUPROFEN [Suspect]
     Active Substance: IBUPROFEN
     Indication: Back pain

REACTIONS (3)
  - Complication associated with device [Unknown]
  - Intentional product misuse [Unknown]
  - Overdose [Unknown]
